APPROVED DRUG PRODUCT: ERYTHROMYCIN
Active Ingredient: ERYTHROMYCIN
Strength: 1.5%
Dosage Form/Route: SOLUTION;TOPICAL
Application: A062485 | Product #001
Applicant: PHARMAFAIR INC
Approved: Jul 11, 1984 | RLD: No | RS: No | Type: DISCN